FAERS Safety Report 15390296 (Version 1)
Quarter: 2018Q3

REPORT INFORMATION
  Report Type: Spontaneous
  Country: RO (occurrence: RO)
  Receive Date: 20180917
  Receipt Date: 20180917
  Transmission Date: 20181010
  Serious: Yes (Hospitalization, Other)
  Sender: FDA-Public Use
  Company Number: RO-AUROBINDO-AUR-APL-2018-045978

PATIENT
  Age: 64 Year
  Sex: Female

DRUGS (4)
  1. METHYLPREDNISOLONE. [Suspect]
     Active Substance: METHYLPREDNISOLONE
     Indication: DERMATOMYOSITIS
     Dosage: 64 MILLIGRAM, ONCE A DAY
     Route: 048
  2. MEROPENEM. [Concomitant]
     Active Substance: MEROPENEM
     Indication: KLEBSIELLA INFECTION
     Dosage: UNK
     Route: 065
  3. LINEZOLID. [Suspect]
     Active Substance: LINEZOLID
     Indication: KLEBSIELLA INFECTION
     Dosage: UNK
     Route: 065
  4. DOXYCYCLINE. [Concomitant]
     Active Substance: DOXYCYCLINE
     Indication: KLEBSIELLA INFECTION
     Dosage: UNK
     Route: 065

REACTIONS (8)
  - Pyrexia [Recovering/Resolving]
  - Klebsiella infection [Recovering/Resolving]
  - Lung abscess [Recovering/Resolving]
  - Haemoptysis [Recovering/Resolving]
  - Thrombocytopenia [Recovering/Resolving]
  - Pneumothorax [Recovering/Resolving]
  - Dyspnoea [Recovering/Resolving]
  - Diabetes mellitus [Recovering/Resolving]
